FAERS Safety Report 14837716 (Version 1)
Quarter: 2018Q2

REPORT INFORMATION
  Report Type: Spontaneous
  Country: US (occurrence: US)
  Receive Date: 20180418
  Receipt Date: 20180418
  Transmission Date: 20180711
  Serious: Yes (Death)
  Sender: FDA-Public Use
  Company Number: None

PATIENT
  Age: 86 Year
  Sex: Female
  Weight: 62.2 kg

DRUGS (1)
  1. REGADENOSON [Suspect]
     Active Substance: REGADENOSON
     Indication: SCAN MYOCARDIAL PERFUSION
     Dates: start: 20171128, end: 20171128

REACTIONS (7)
  - Blood pressure increased [None]
  - Loss of consciousness [None]
  - Cardio-respiratory arrest [None]
  - Pulseless electrical activity [None]
  - Seizure [None]
  - Chest discomfort [None]
  - Electrocardiogram ST segment elevation [None]

NARRATIVE: CASE EVENT DATE: 20171128
